FAERS Safety Report 25040744 (Version 1)
Quarter: 2025Q1

REPORT INFORMATION
  Report Type: Spontaneous
  Country: US (occurrence: None)
  Receive Date: 20250304
  Receipt Date: 20250304
  Transmission Date: 20250409
  Serious: Yes (Other)
  Sender: FDA-CTU
  Company Number: None

PATIENT
  Sex: Male

DRUGS (1)
  1. BIMZELX [Suspect]
     Active Substance: BIMEKIZUMAB-BKZX
     Indication: Psoriasis
     Route: 058
     Dates: start: 20241204, end: 20250303

REACTIONS (5)
  - Chapped lips [None]
  - Plicated tongue [None]
  - Lip swelling [None]
  - Swollen tongue [None]
  - Therapy cessation [None]
